FAERS Safety Report 7989753-3 (Version None)
Quarter: 2011Q4

REPORT INFORMATION
  Report Type: 
  Country: None (occurrence: None)
  Receive Date: 20111219
  Receipt Date: 20110311
  Transmission Date: 20120403
  Serious: No
  Sender: FDA-Public Use
  Company Number: US-ASTRAZENECA-2011SE11195

PATIENT
  Age: 71 Year
  Sex: Female

DRUGS (11)
  1. CRESTOR [Suspect]
     Route: 048
     Dates: start: 20100101
  2. CRESTOR [Suspect]
     Indication: HYPERCHOLESTEROLAEMIA
     Route: 048
     Dates: start: 20090101
  3. CALCIUM [Concomitant]
  4. COQ10 [Concomitant]
  5. NORVASC [Concomitant]
     Indication: HYPERTENSION
  6. MAGNESIUM [Concomitant]
  7. LUTEIN [Concomitant]
  8. CRESTOR [Suspect]
     Route: 048
     Dates: start: 20100101
  9. GRAPE SEED EXTRACT [Concomitant]
  10. ALPHA LIPOIC ACID [Concomitant]
  11. HAWTHORNE [Concomitant]

REACTIONS (3)
  - HYPOAESTHESIA [None]
  - MUSCULAR WEAKNESS [None]
  - MEMORY IMPAIRMENT [None]
